FAERS Safety Report 18523686 (Version 18)
Quarter: 2021Q4

REPORT INFORMATION
  Report Type: Report from Study
  Country: CN (occurrence: None)
  Receive Date: 20201119
  Receipt Date: 20211223
  Transmission Date: 20220303
  Serious: Yes (Hospitalization)
  Sender: FDA-Public Use
  Company Number: CN-EISAI MEDICAL RESEARCH-EC-2020-083965

PATIENT
  Age: 54 Year
  Sex: Female
  Weight: 71 kg

DRUGS (9)
  1. LENVATINIB [Suspect]
     Active Substance: LENVATINIB
     Indication: Endometrial cancer
     Route: 048
     Dates: start: 20200930, end: 20201112
  2. LENVATINIB [Suspect]
     Active Substance: LENVATINIB
     Dosage: DOSE REDUCED
     Route: 048
     Dates: start: 20201120
  3. PEMBROLIZUMAB [Suspect]
     Active Substance: PEMBROLIZUMAB
     Indication: Endometrial cancer
     Route: 041
     Dates: start: 20200930, end: 20200930
  4. PEMBROLIZUMAB [Suspect]
     Active Substance: PEMBROLIZUMAB
     Route: 041
     Dates: start: 20201021, end: 20201021
  5. COMPOUND RESERPINE [Concomitant]
     Indication: Endometrial cancer
     Dates: start: 20201001
  6. AMLODIPINE(+) VALSARTAN [Concomitant]
     Indication: Endometrial cancer
     Dates: start: 20200822
  7. METOPROLOL SUCCINATE [Concomitant]
     Active Substance: METOPROLOL SUCCINATE
     Indication: Endometrial cancer
     Dates: start: 20201001
  8. BENZALKONIUM CHLORIDE [Concomitant]
     Active Substance: BENZALKONIUM CHLORIDE
     Indication: Endometrial cancer
     Dosage: RINSE
     Dates: start: 20201021, end: 20201120
  9. BICYCLOL [Concomitant]
     Active Substance: BICYCLOL
     Dates: start: 20201024, end: 20201120

REACTIONS (1)
  - Dermatitis [Recovered/Resolved]

NARRATIVE: CASE EVENT DATE: 20201026
